FAERS Safety Report 6491919-9 (Version None)
Quarter: 2009Q4

REPORT INFORMATION
  Report Type: 
  Country: None (occurrence: None)
  Receive Date: 20091208
  Receipt Date: 20091027
  Transmission Date: 20100525
  Serious: Yes (Hospitalization)
  Sender: FDA-Public Use
  Company Number: 2009AC000466

PATIENT
  Age: 86 Year
  Sex: Female

DRUGS (6)
  1. DIGOXIN [Suspect]
     Dosage: PO
     Route: 048
  2. MEMANTINE [Concomitant]
  3. ASPIRIN [Concomitant]
  4. VALPROATE SODIUM [Concomitant]
  5. FUROSEMIDE [Concomitant]
  6. ACE INHIBITOR [Concomitant]

REACTIONS (4)
  - CEREBROVASCULAR ACCIDENT [None]
  - DRUG INTERACTION [None]
  - SOMNOLENCE [None]
  - WEIGHT INCREASED [None]
